FAERS Safety Report 4623120-5 (Version None)
Quarter: 2005Q1

REPORT INFORMATION
  Report Type: 
  Country: None (occurrence: None)
  Receive Date: 20050328
  Receipt Date: 20050328
  Transmission Date: 20050727
  Serious: No
  Sender: FDA-Public Use
  Company Number: None

PATIENT
  Sex: Male
  Weight: 72.7 kg

DRUGS (10)
  1. FLUOROURACIL [Suspect]
     Dosage: 300 MG/MG/DAY CONTINUOUS INFUSION OVER 96 HOURS M-F X 5 WEEKS
     Dates: start: 20040607
  2. CISPLATIN [Suspect]
     Dosage: 15 MG/M2/DAY IV OVER 1 HOUR ON DAY 1-5
     Route: 042
  3. RADIOTHERAPY [Suspect]
     Dosage: 1.8 GY/FX, 5 DAYS/WEEK, M-F, TOTA; 50.4 GY/28FX
  4. ASPIRIN [Concomitant]
  5. DIPHENHYDRAMINE HCL [Concomitant]
  6. FAMOTIDINE [Concomitant]
  7. FENTANYL [Concomitant]
  8. HEPARIN [Concomitant]
  9. MAGNESIUM SULFATE [Concomitant]
  10. METOPROLOL TARTRATE [Concomitant]

REACTIONS (5)
  - CARDIO-RESPIRATORY ARREST [None]
  - DYSPNOEA [None]
  - HYPOTENSION [None]
  - PROCEDURAL COMPLICATION [None]
  - SUPRAVENTRICULAR TACHYCARDIA [None]
